FAERS Safety Report 20961423 (Version 1)
Quarter: 2022Q2

REPORT INFORMATION
  Report Type: Spontaneous
  Country: GB (occurrence: GB)
  Receive Date: 20220615
  Receipt Date: 20220615
  Transmission Date: 20220720
  Serious: Yes (Death, Other)
  Sender: FDA-Public Use
  Company Number: GB-ELI_LILLY_AND_COMPANY-GB202206004484

PATIENT
  Age: 83 Year
  Sex: Female

DRUGS (1)
  1. ABEMACICLIB [Suspect]
     Active Substance: ABEMACICLIB
     Indication: Product used for unknown indication
     Dosage: 150 MG, CYCLICAL
     Route: 065
     Dates: end: 20210324

REACTIONS (3)
  - Death [Fatal]
  - Malignant neoplasm progression [Unknown]
  - Ascites [Unknown]

NARRATIVE: CASE EVENT DATE: 20210404
